FAERS Safety Report 9143862 (Version 2)
Quarter: 2013Q1

REPORT INFORMATION
  Report Type: Spontaneous
  Country: JP (occurrence: JP)
  Receive Date: 20130306
  Receipt Date: 20130320
  Transmission Date: 20140127
  Serious: Yes (Other)
  Sender: FDA-Public Use
  Company Number: JP-BAYER-2013-022691

PATIENT
  Age: 37 Year
  Sex: Female

DRUGS (12)
  1. BAYASPIRIN [Suspect]
     Indication: ANTIPLATELET THERAPY
     Dosage: 100 MG
     Route: 048
  2. METHYLPREDNISOLONE [Concomitant]
     Indication: THROMBOTIC THROMBOCYTOPENIC PURPURA
     Dosage: 250 MG, QD
  3. METHYLPREDNISOLONE [Concomitant]
     Indication: THROMBOTIC THROMBOCYTOPENIC PURPURA
     Dosage: 125 MG, QD
  4. PREDNISOLONE [Concomitant]
     Indication: THROMBOTIC THROMBOCYTOPENIC PURPURA
     Dosage: 25 MG, QD
  5. PREDNISOLONE [Concomitant]
     Indication: THROMBOTIC THROMBOCYTOPENIC PURPURA
     Dosage: 20 MG, QD
  6. PREDNISOLONE [Concomitant]
     Indication: THROMBOTIC THROMBOCYTOPENIC PURPURA
     Dosage: 15 MG, QD
  7. PACKED RBC [Concomitant]
     Indication: THROMBOTIC THROMBOCYTOPENIC PURPURA
     Dosage: 10 UNITS
  8. PACKED RBC [Concomitant]
     Indication: THROMBOTIC THROMBOCYTOPENIC PURPURA
     Dosage: 6 UNITS
  9. PLATELETS, HUMAN BLOOD [Concomitant]
     Indication: THROMBOTIC THROMBOCYTOPENIC PURPURA
     Dosage: 20 UNITS
  10. PLATELETS, HUMAN BLOOD [Concomitant]
     Indication: THROMBOTIC THROMBOCYTOPENIC PURPURA
     Dosage: 20 UNITS
  11. PLASMA, FRESH FROZEN [Concomitant]
     Indication: THROMBOTIC THROMBOCYTOPENIC PURPURA
     Dosage: 55 ML/KG, QD
  12. PLASMA, FRESH FROZEN [Concomitant]
     Indication: THROMBOTIC THROMBOCYTOPENIC PURPURA
     Dosage: UNK

REACTIONS (2)
  - Foetal placental thrombosis [None]
  - Exposure during pregnancy [None]
